FAERS Safety Report 15898544 (Version 2)
Quarter: 2019Q1

REPORT INFORMATION
  Report Type: Spontaneous
  Country: DE (occurrence: DE)
  Receive Date: 20190201
  Receipt Date: 20190311
  Transmission Date: 20190417
  Serious: Yes (Other)
  Sender: FDA-Public Use
  Company Number: DE-TEVA-2019-DE-1004054

PATIENT
  Age: 80 Year
  Sex: Male

DRUGS (1)
  1. SIMVASTATIN-RATIOPHARM 40 MG FILMTABLETTEN [Suspect]
     Active Substance: SIMVASTATIN
     Indication: MYOCARDIAL INFARCTION
     Dosage: 20 MILLIGRAM DAILY; EACH EVENING A HALF TABLET
     Route: 048
     Dates: start: 2014, end: 201811

REACTIONS (4)
  - Pain [Recovered/Resolved]
  - C-reactive protein [Recovered/Resolved]
  - Musculoskeletal stiffness [Recovered/Resolved]
  - Gait inability [Recovered/Resolved]

NARRATIVE: CASE EVENT DATE: 201807
